FAERS Safety Report 14902090 (Version 1)
Quarter: 2018Q2

REPORT INFORMATION
  Report Type: Spontaneous
  Country: US (occurrence: US)
  Receive Date: 20180428
  Receipt Date: 20180428
  Transmission Date: 20180711
  Serious: Yes (Disabling)
  Sender: FDA-Public Use
  Company Number: None

PATIENT
  Age: 36 Year
  Sex: Male
  Weight: 72 kg

DRUGS (1)
  1. PLAQUENIL [Suspect]
     Active Substance: HYDROXYCHLOROQUINE SULFATE
     Indication: LYME DISEASE
     Dosage: ?          QUANTITY:2 TABLET(S);?
     Route: 048
     Dates: start: 20180424, end: 20180424

REACTIONS (12)
  - Dizziness [None]
  - Cold sweat [None]
  - Feeling hot [None]
  - Abdominal pain upper [None]
  - Asthenia [None]
  - Headache [None]
  - Photophobia [None]
  - Epistaxis [None]
  - Skin discolouration [None]
  - Dark circles under eyes [None]
  - Dysuria [None]
  - Eye colour change [None]

NARRATIVE: CASE EVENT DATE: 20180424
